FAERS Safety Report 12493437 (Version 1)
Quarter: 2016Q2

REPORT INFORMATION
  Report Type: Spontaneous
  Country: DK (occurrence: FR)
  Receive Date: 20160623
  Receipt Date: 20160623
  Transmission Date: 20160815
  Serious: Yes (Hospitalization)
  Sender: FDA-Public Use
  Company Number: FR-FRI-1000085546

PATIENT
  Age: 76 Year
  Sex: Male

DRUGS (6)
  1. LERCAN [Concomitant]
     Active Substance: LERCANIDIPINE
  2. TAHOR [Concomitant]
     Active Substance: ATORVASTATIN CALCIUM
  3. MEMANTINE. [Suspect]
     Active Substance: MEMANTINE
     Indication: DEMENTIA
     Dosage: 20 MG
     Route: 048
     Dates: start: 20160330, end: 20160517
  4. BIPRETERAX [Concomitant]
     Active Substance: INDAPAMIDE\PERINDOPRIL
  5. KARDEGIC [Concomitant]
     Active Substance: ASPIRIN LYSINE
  6. CITALOPRAM [Concomitant]
     Active Substance: CITALOPRAM HYDROBROMIDE

REACTIONS (3)
  - Somnolence [Recovering/Resolving]
  - Chest pain [Recovering/Resolving]
  - Dyspnoea exertional [Recovering/Resolving]

NARRATIVE: CASE EVENT DATE: 201604
